FAERS Safety Report 11266131 (Version 1)
Quarter: 2015Q2

REPORT INFORMATION
  Report Type: Spontaneous
  Country: US (occurrence: None)
  Receive Date: 20150625
  Receipt Date: 20150625
  Transmission Date: 20150821
  Serious: Yes (Hospitalization)
  Sender: FDA-Public Use
  Company Number: A-NJ2015-115923

PATIENT
  Age: 61 Year
  Sex: Female

DRUGS (6)
  1. OPSUMIT [Suspect]
     Active Substance: MACITENTAN
     Indication: PULMONARY ARTERIAL HYPERTENSION
     Dosage: 10 ORAL
     Route: 048
     Dates: start: 20140508
  2. NEURONTIN [Concomitant]
     Active Substance: GABAPENTIN
  3. PRILOSEC (OMEPRAZOLE) [Concomitant]
     Active Substance: OMEPRAZOLE MAGNESIUM
  4. VELETRI [Suspect]
     Active Substance: EPOPROSTENOL
     Indication: PULMONARY ARTERIAL HYPERTENSION
     Dosage: 23 NG/KG, PER MIN, INTRAVENOUS
     Route: 042
     Dates: start: 20140523
  5. ALDACTONE [Concomitant]
     Active Substance: SPIRONOLACTONE
  6. COUMADIN [Concomitant]
     Active Substance: WARFARIN SODIUM

REACTIONS (2)
  - Dyspnoea [None]
  - Respiratory failure [None]

NARRATIVE: CASE EVENT DATE: 20150330
